FAERS Safety Report 24995833 (Version 1)
Quarter: 2025Q1

REPORT INFORMATION
  Report Type: Spontaneous
  Country: CA (occurrence: CA)
  Receive Date: 20250221
  Receipt Date: 20250221
  Transmission Date: 20250409
  Serious: Yes (Hospitalization)
  Sender: TEVA
  Company Number: CA-TEVA-VS-3301619

PATIENT
  Age: 77 Year
  Sex: Female
  Weight: 50 kg

DRUGS (2)
  1. MESALAMINE [Suspect]
     Active Substance: MESALAMINE
     Indication: Colitis
     Route: 048
  2. MESALAMINE [Suspect]
     Active Substance: MESALAMINE
     Indication: Colitis
     Route: 048

REACTIONS (7)
  - Asthenia [Recovered/Resolved]
  - Upper respiratory tract infection [Recovered/Resolved]
  - General physical health deterioration [Recovered/Resolved]
  - Weight decreased [Recovered/Resolved]
  - Pyrexia [Recovered/Resolved]
  - Cough [Recovered/Resolved]
  - Eosinophil count increased [Recovered/Resolved]
